FAERS Safety Report 10142532 (Version 2)
Quarter: 2014Q2

REPORT INFORMATION
  Report Type: Report from Study
  Country: CA (occurrence: CA)
  Receive Date: 20140430
  Receipt Date: 20140430
  Transmission Date: 20141212
  Serious: Yes (Life-Threatening, Hospitalization)
  Sender: FDA-Public Use
  Company Number: CA-BRISTOL-MYERS SQUIBB COMPANY-16508251

PATIENT
  Age: 35 Year
  Sex: Female
  Weight: 52 kg

DRUGS (7)
  1. ORENCIA [Suspect]
     Indication: RHEUMATOID ARTHRITIS
     Dosage: LAST DE;15DEC10,08JUL11,18MAR12, 17DEC12 LOT NO1L66305 EXP:APR15,JUL2015?NO OF INF:35,EP:SEP2015
     Route: 042
     Dates: start: 20091201
  2. CELEBREX [Concomitant]
  3. TRAZODONE HCL [Concomitant]
  4. LABETALOL [Concomitant]
  5. MULTIVITAMINS [Concomitant]
  6. CALCIUM [Concomitant]
  7. PREDNISONE [Concomitant]
     Dosage: 1DF=5 OR 6MG.

REACTIONS (10)
  - Eclampsia [Unknown]
  - Dyspnoea [Recovering/Resolving]
  - Generalised tonic-clonic seizure [Unknown]
  - Pregnancy [Recovered/Resolved]
  - Normal newborn [Unknown]
  - Nasal congestion [Not Recovered/Not Resolved]
  - Paranasal sinus discomfort [Not Recovered/Not Resolved]
  - Mass [Unknown]
  - Tracheitis [Recovering/Resolving]
  - Laryngeal rheumatoid arthritis [Unknown]
